FAERS Safety Report 24208563 (Version 1)
Quarter: 2024Q3

REPORT INFORMATION
  Report Type: Spontaneous
  Country: CA (occurrence: CA)
  Receive Date: 20240814
  Receipt Date: 20240814
  Transmission Date: 20241017
  Serious: Yes (Life-Threatening, Hospitalization, Other)
  Sender: CELLTRION
  Company Number: CA-CELLTRION INC.-2021CA019478

PATIENT

DRUGS (9)
  1. TRUXIMA [Suspect]
     Active Substance: RITUXIMAB-ABBS
     Indication: Vasculitis
     Dosage: 500 MG, 1 DOSE
     Route: 042
     Dates: start: 20210830
  2. TRUXIMA [Suspect]
     Active Substance: RITUXIMAB-ABBS
     Dosage: 1 GRAM
     Route: 042
  3. TRUXIMA [Suspect]
     Active Substance: RITUXIMAB-ABBS
     Dosage: 500 MG, INFUSION#4
     Route: 042
     Dates: start: 20210830
  4. TRUXIMA [Suspect]
     Active Substance: RITUXIMAB-ABBS
     Dosage: 500 MG
     Route: 042
     Dates: start: 20210830
  5. TRUXIMA [Suspect]
     Active Substance: RITUXIMAB-ABBS
     Dosage: 500 MG, INFUSION#6
     Route: 042
  6. INSULIN NOS [Concomitant]
     Active Substance: INSULIN NOS
  7. METFORMIN [Concomitant]
     Active Substance: METFORMIN HYDROCHLORIDE
  8. JANUVIA [Concomitant]
     Active Substance: SITAGLIPTIN PHOSPHATE
  9. HYDROMORPHONE [Concomitant]
     Active Substance: HYDROMORPHONE

REACTIONS (17)
  - Ill-defined disorder [Unknown]
  - Blood glucose abnormal [Unknown]
  - Condition aggravated [Unknown]
  - Discomfort [Unknown]
  - Hospitalisation [Unknown]
  - Hypoaesthesia [Unknown]
  - Sensory loss [Unknown]
  - COVID-19 [Unknown]
  - Arthralgia [Unknown]
  - Pneumonia [Not Recovered/Not Resolved]
  - Antibiotic therapy [Not Recovered/Not Resolved]
  - Cough [Unknown]
  - Pyrexia [Unknown]
  - Pain [Unknown]
  - Intentional dose omission [Unknown]
  - Product prescribing issue [Unknown]
  - Off label use [Unknown]

NARRATIVE: CASE EVENT DATE: 20230131
